FAERS Safety Report 9765719 (Version 1)
Quarter: 2013Q4

REPORT INFORMATION
  Report Type: Spontaneous
  Country: US (occurrence: US)
  Receive Date: 20131217
  Receipt Date: 20131217
  Transmission Date: 20140711
  Serious: No
  Sender: FDA-Public Use
  Company Number: US-BIOGENIDEC-2013BI113778

PATIENT
  Sex: Female

DRUGS (10)
  1. TECFIDERA [Suspect]
     Indication: MULTIPLE SCLEROSIS
     Route: 048
     Dates: start: 20130918
  2. AMPYRA [Concomitant]
  3. LIPITOR [Concomitant]
  4. NIACIN [Concomitant]
  5. PROVIGIL [Concomitant]
  6. VITAMIN B-1 [Concomitant]
  7. VITAMIN B-12 [Concomitant]
  8. VITAMIN D2 [Concomitant]
  9. WELBUTRIN [Concomitant]
  10. NIASPAN [Concomitant]

REACTIONS (2)
  - Urine odour abnormal [Unknown]
  - Dehydration [Unknown]
